FAERS Safety Report 9648784 (Version 1)
Quarter: 2013Q4

REPORT INFORMATION
  Report Type: Spontaneous
  Country: US (occurrence: US)
  Receive Date: 20131028
  Receipt Date: 20131028
  Transmission Date: 20140711
  Serious: No
  Sender: FDA-Public Use
  Company Number: US-009507513-1310USA012279

PATIENT
  Age: 83 Year
  Sex: Female

DRUGS (1)
  1. INVANZ [Suspect]
     Indication: INFECTION
     Dosage: 1 G, QD
     Route: 042
     Dates: start: 20131023

REACTIONS (2)
  - Bradycardia [Recovered/Resolved]
  - Tachycardia [Recovered/Resolved]
